FAERS Safety Report 18716806 (Version 1)
Quarter: 2021Q1

REPORT INFORMATION
  Report Type: Spontaneous
  Country: US (occurrence: US)
  Receive Date: 20210107
  Receipt Date: 20210107
  Transmission Date: 20210419
  Serious: No
  Sender: FDA-Public Use
  Company Number: None

PATIENT
  Sex: Male

DRUGS (1)
  1. TREMFYA [Suspect]
     Active Substance: GUSELKUMAB
     Indication: PSORIASIS
     Dosage: INJECT 1 PEN UNDER THE SKIN AT WEEK 0, THEN AT WEEK 4 AND THENE EVERY 8 WEEKS THEREAFTER
     Route: 058
     Dates: start: 20201117

REACTIONS (2)
  - Drug ineffective [None]
  - Vision blurred [None]
